FAERS Safety Report 23157000 (Version 1)
Quarter: 2023Q4

REPORT INFORMATION
  Report Type: Spontaneous
  Country: US (occurrence: US)
  Receive Date: 20231108
  Receipt Date: 20231108
  Transmission Date: 20240109
  Serious: No
  Sender: FDA-Public Use
  Company Number: US-ELI_LILLY_AND_COMPANY-US202311003736

PATIENT
  Sex: Male

DRUGS (2)
  1. MOUNJARO [Suspect]
     Active Substance: TIRZEPATIDE
     Indication: Obesity
     Dosage: 10 MG, UNKNOWN
     Route: 065
  2. MOUNJARO [Suspect]
     Active Substance: TIRZEPATIDE
     Indication: Glucose tolerance impaired

REACTIONS (7)
  - Off label use [Unknown]
  - Illness [Unknown]
  - Sleep disorder due to general medical condition, insomnia type [Unknown]
  - Nausea [Unknown]
  - Abdominal discomfort [Unknown]
  - Eructation [Unknown]
  - Vomiting [Unknown]
